FAERS Safety Report 25682704 (Version 2)
Quarter: 2025Q4

REPORT INFORMATION
  Report Type: Spontaneous
  Country: US (occurrence: US)
  Receive Date: 20250814
  Receipt Date: 20251003
  Transmission Date: 20260118
  Serious: Yes (Hospitalization, Other)
  Sender: TEVA
  Company Number: US-TEVA-VS-3258737

PATIENT
  Age: 23 Year
  Sex: Male

DRUGS (2)
  1. UZEDY [Suspect]
     Active Substance: RISPERIDONE
     Indication: Psychotic disorder
     Dosage: 250/0.7 MG/ML
     Route: 065
     Dates: start: 20241008, end: 2025
  2. UZEDY [Suspect]
     Active Substance: RISPERIDONE
     Indication: Schizophrenia
     Dosage: FORM STRENGTH: 250/0.7 MG/ML
     Route: 065
     Dates: start: 2024, end: 2024

REACTIONS (5)
  - Hospitalisation [Unknown]
  - Off label use [Unknown]
  - Schizophrenia [Unknown]
  - Anaphylactic reaction [Unknown]
  - Nervousness [Unknown]

NARRATIVE: CASE EVENT DATE: 20240101
